FAERS Safety Report 14987146 (Version 1)
Quarter: 2018Q2

REPORT INFORMATION
  Report Type: Spontaneous
  Country: KR (occurrence: KR)
  Receive Date: 20180608
  Receipt Date: 20180608
  Transmission Date: 20180711
  Serious: Yes (Other)
  Sender: FDA-Public Use
  Company Number: KR-ALKEM LABORATORIES LIMITED-KR-ALKEM-2018-01803

PATIENT
  Age: 63 Year
  Sex: Female

DRUGS (2)
  1. LINEZOLID. [Suspect]
     Active Substance: LINEZOLID
     Indication: ARTHRITIS INFECTIVE
  2. LINEZOLID. [Suspect]
     Active Substance: LINEZOLID
     Indication: STAPHYLOCOCCAL INFECTION
     Dosage: UNK
     Route: 065

REACTIONS (6)
  - Encephalopathy [Unknown]
  - Lactic acidosis [Unknown]
  - Myopathy [Recovered/Resolved]
  - Renal failure [Recovered/Resolved]
  - Hyperlactacidaemia [Recovered/Resolved]
  - Toxic optic neuropathy [Not Recovered/Not Resolved]
